FAERS Safety Report 8442794-4 (Version None)
Quarter: 2012Q2

REPORT INFORMATION
  Report Type: 
  Country: None (occurrence: None)
  Receive Date: 20120615
  Receipt Date: 20120611
  Transmission Date: 20120825
  Serious: Yes (Other)
  Sender: FDA-Public Use
  Company Number: CA-ROCHE-GNE322732

PATIENT
  Sex: Female
  Weight: 74.9 kg

DRUGS (6)
  1. SYMBICORT [Concomitant]
     Indication: PRODUCT USED FOR UNKNOWN INDICATION
  2. SINGULAIR [Concomitant]
     Indication: PRODUCT USED FOR UNKNOWN INDICATION
  3. ATROVENT [Concomitant]
     Indication: PRODUCT USED FOR UNKNOWN INDICATION
  4. XOLAIR [Suspect]
     Indication: ASTHMA
     Dosage: 300 MG, Q4W, VIAL
     Route: 058
     Dates: start: 20090126
  5. ALVESCO [Concomitant]
     Indication: PRODUCT USED FOR UNKNOWN INDICATION
  6. PREDNISONE [Concomitant]
     Indication: PRODUCT USED FOR UNKNOWN INDICATION
     Dates: end: 20111215

REACTIONS (13)
  - HEADACHE [None]
  - CHEST PAIN [None]
  - CHEST DISCOMFORT [None]
  - DYSPNOEA [None]
  - SWELLING FACE [None]
  - BLOOD PRESSURE INCREASED [None]
  - PALPITATIONS [None]
  - DIZZINESS [None]
  - GASTROINTESTINAL DISORDER [None]
  - HYPERSENSITIVITY [None]
  - HEART RATE INCREASED [None]
  - ASTHMA [None]
  - CARDIAC DISORDER [None]
